FAERS Safety Report 11655025 (Version 1)
Quarter: 2015Q4

REPORT INFORMATION
  Report Type: Spontaneous
  Country: CA (occurrence: CA)
  Receive Date: 20151023
  Receipt Date: 20151023
  Transmission Date: 20160304
  Serious: Yes (Other)
  Sender: FDA-Public Use
  Company Number: CA-ACTAVIS-2015-22856

PATIENT
  Age: 66 Year
  Sex: Female

DRUGS (1)
  1. ALENDRONATE SODIUM- (UNKNOWN) [Suspect]
     Active Substance: ALENDRONATE SODIUM
     Indication: OSTEOPENIA
     Dosage: LONG-TERM USE OF ALENDRONIC ACID
     Route: 065

REACTIONS (1)
  - Rib fracture [Recovering/Resolving]
